FAERS Safety Report 8873043 (Version 2)
Quarter: 2012Q4

REPORT INFORMATION
  Report Type: 
  Country: US (occurrence: US)
  Receive Date: 20121029
  Receipt Date: 20121218
  Transmission Date: 20130627
  Serious: No
  Sender: FDA-Public Use
  Company Number: US-009507513-1210USA011263

PATIENT
  Sex: Female

DRUGS (1)
  1. SAPHRIS [Suspect]
     Route: 060

REACTIONS (1)
  - Anaphylactic reaction [Recovered/Resolved]
